FAERS Safety Report 10173233 (Version 2)
Quarter: 2014Q2

REPORT INFORMATION
  Report Type: Spontaneous
  Country: US (occurrence: None)
  Receive Date: 20140416
  Receipt Date: 20140604
  Transmission Date: 20141212
  Serious: No
  Sender: FDA-Public Use
  Company Number: 163-POMAL-14010594

PATIENT
  Age: 77 Year
  Sex: Female
  Weight: 83 kg

DRUGS (11)
  1. POMALYST [Suspect]
     Indication: PLASMA CELL MYELOMA
     Dosage: 4 MG, 21 IN 21 D, PO
     Route: 048
     Dates: start: 20131104, end: 20131218
  2. DEXAMETHASONE (DEXAMETHASONE) [Concomitant]
  3. SYNTHROID (LEVOTHYROXINE SODIUM) [Concomitant]
  4. GABAPENTIN (GABAPENTIN) [Concomitant]
  5. SULAR [Concomitant]
  6. MULTIVITAMIN [Concomitant]
  7. ZOFRAN [Concomitant]
  8. NEXIUM (ESOMEPRAZOLE) [Concomitant]
  9. ASPIRIN (ACETYLSALICYLIC ACID) [Concomitant]
  10. DOCUSATE(DOCUSATE)(UNKNOWN) [Concomitant]
  11. CIPRO(CIPROFLOXACIN)(UNKNOWN) [Concomitant]

REACTIONS (13)
  - Hypertension [None]
  - Feeling abnormal [None]
  - Skin exfoliation [None]
  - Abdominal discomfort [None]
  - Influenza like illness [None]
  - Palpitations [None]
  - Chest discomfort [None]
  - Stomatitis [None]
  - Hypoaesthesia [None]
  - Back pain [None]
  - Musculoskeletal pain [None]
  - Nasopharyngitis [None]
  - Constipation [None]
